FAERS Safety Report 8809571 (Version 2)
Quarter: 2013Q1

REPORT INFORMATION
  Report Type: Spontaneous
  Country: JP (occurrence: JP)
  Receive Date: 20120926
  Receipt Date: 20130213
  Transmission Date: 20140127
  Serious: Yes (Hospitalization)
  Sender: FDA-Public Use
  Company Number: JP-AMGEN-JPNSP2012060246

PATIENT
  Age: 67 Year
  Sex: Female

DRUGS (5)
  1. RANMARK [Suspect]
     Indication: METASTASES TO BONE
     Dosage: 120 MG, UNK
     Route: 058
     Dates: start: 201207, end: 20120813
  2. ZOMETA [Suspect]
     Dosage: UNK
     Dates: start: 2007, end: 201207
  3. ONEALFA [Concomitant]
     Dosage: UNKNOWN
     Route: 065
  4. CALCIUM LACTATE [Concomitant]
     Dosage: UNKNOWN
     Route: 065
  5. TASUOMIN [Concomitant]
     Dosage: UNKNOWN
     Route: 065

REACTIONS (1)
  - Osteonecrosis of jaw [Unknown]
